FAERS Safety Report 10437758 (Version 1)
Quarter: 2014Q3

REPORT INFORMATION
  Report Type: Spontaneous
  Country: US (occurrence: US)
  Receive Date: 20140908
  Receipt Date: 20140908
  Transmission Date: 20150326
  Serious: No
  Sender: FDA-Public Use
  Company Number: US-BRISTOL-MYERS SQUIBB COMPANY-19783505

PATIENT
  Sex: Female

DRUGS (1)
  1. ABILIFY [Suspect]
     Active Substance: ARIPIPRAZOLE
     Dosage: ORIGINAL PRODUCT DOSE IS 2 MG.SPLIT INTO 1MG.

REACTIONS (4)
  - Asthenia [Unknown]
  - Wrong technique in drug usage process [Unknown]
  - Dystonia [Unknown]
  - Gait disturbance [Unknown]
